FAERS Safety Report 9921744 (Version 2)
Quarter: 2014Q1

REPORT INFORMATION
  Report Type: Spontaneous
  Country: US (occurrence: US)
  Receive Date: 20140225
  Receipt Date: 20140225
  Transmission Date: 20141002
  Serious: Yes (Other)
  Sender: FDA-Public Use
  Company Number: US-BEH-2013036342

PATIENT
  Age: 66 Year
  Sex: Female
  Weight: 67 kg

DRUGS (30)
  1. PRIVIGEN [Suspect]
     Dosage: VIA GRAVITY OVER 1-3 HOURS
     Route: 042
  2. PRIVIGEN [Suspect]
     Indication: IMMUNODEFICIENCY COMMON VARIABLE
     Dosage: VIA GRAVITY OVER 1-3 HOURS
     Route: 042
  3. PRIVIGEN [Suspect]
     Dosage: VIA GRAVITY OVER 1-3 HOURS
     Route: 042
  4. PRIVIGEN [Suspect]
     Dosage: 5 GM VIAL; OVER 1-3 HOURS
     Route: 042
  5. PRIVIGEN [Suspect]
     Dosage: 10 GM VIAL;OVER 1-3 HOURS
     Route: 042
  6. TEMAZEPAM [Concomitant]
  7. KYTRIL [Concomitant]
  8. SYNTHROID [Concomitant]
  9. LIQUID B12 [Concomitant]
  10. CVS LORATADINE [Concomitant]
  11. CVS OMEPRAZOLE DR [Concomitant]
  12. ASPIRIN [Concomitant]
  13. DEXTROSE 5% [Concomitant]
     Indication: PREMEDICATION
  14. DIPHENHYDRAMINE [Concomitant]
  15. DIPHENHYDRAMINE HYDROCHLORIDE [Concomitant]
     Indication: PREMEDICATION
  16. LIDOCAINE/PRILOCAINE [Concomitant]
     Indication: PREMEDICATION
  17. SODIUM CHLORIDE 0.9% [Concomitant]
     Indication: PREMEDICATION
  18. EPI-PEN [Concomitant]
     Indication: PREMEDICATION
  19. LIPITOR [Concomitant]
  20. REQUIP [Concomitant]
  21. COENZYME Q10 [Concomitant]
  22. METOPROLOL TARTRATE [Concomitant]
  23. TYVASO [Concomitant]
  24. VENLAFAXINE HCL [Concomitant]
  25. REVATIO [Concomitant]
  26. PRILOSEC [Concomitant]
  27. LEVOTHYROXINE [Concomitant]
  28. ANASTROZOLE [Concomitant]
  29. VITAMIN D [Concomitant]
  30. CALCIUM [Concomitant]

REACTIONS (4)
  - Tooth abscess [Unknown]
  - Tooth infection [Unknown]
  - Sinusitis [Unknown]
  - Cough [Unknown]
